FAERS Safety Report 11169019 (Version 3)
Quarter: 2015Q2

REPORT INFORMATION
  Report Type: Spontaneous
  Country: IT (occurrence: IT)
  Receive Date: 20150605
  Receipt Date: 20150630
  Transmission Date: 20150821
  Serious: Yes (Death, Hospitalization)
  Sender: FDA-Public Use
  Company Number: IT-ELI_LILLY_AND_COMPANY-IT201505009072

PATIENT
  Age: 81 Year
  Sex: Male

DRUGS (5)
  1. DOBETIN                            /00056201/ [Concomitant]
     Active Substance: CYANOCOBALAMIN
     Indication: PRODUCT USED FOR UNKNOWN INDICATION
     Dosage: UNK, UNKNOWN
     Route: 065
  2. CALCIUM LEVOFOLINATE [Concomitant]
     Active Substance: LEVOLEUCOVORIN CALCIUM
     Indication: PRODUCT USED FOR UNKNOWN INDICATION
  3. FOLIC ACID. [Concomitant]
     Active Substance: FOLIC ACID
  4. ALIMTA [Suspect]
     Active Substance: PEMETREXED DISODIUM
     Indication: LUNG ADENOCARCINOMA
     Dosage: 850 MG, CYCLICAL
     Route: 042
     Dates: start: 20141218, end: 20150429
  5. CARBOPLATIN. [Concomitant]
     Active Substance: CARBOPLATIN
     Indication: LUNG ADENOCARCINOMA
     Dosage: 272 MG, CYCLICAL
     Route: 042
     Dates: start: 20141218, end: 20150429

REACTIONS (9)
  - Hyponatraemia [Unknown]
  - Death [Fatal]
  - General physical health deterioration [Unknown]
  - Acute respiratory failure [Unknown]
  - Off label use [Unknown]
  - Generalised oedema [Unknown]
  - Pleural effusion [Unknown]
  - Ascites [Unknown]
  - Anaemia [Unknown]

NARRATIVE: CASE EVENT DATE: 20150522
